FAERS Safety Report 7515808-3 (Version None)
Quarter: 2011Q2

REPORT INFORMATION
  Report Type: 
  Country: None (occurrence: None)
  Receive Date: 20110520
  Receipt Date: 20090630
  Transmission Date: 20111010
  Serious: Yes (Hospitalization)
  Sender: FDA-Public Use
  Company Number: RTA39

PATIENT
  Sex: Male

DRUGS (1)
  1. REMODULIN [Suspect]
     Dates: start: 20081212

REACTIONS (1)
  - RENAL FAILURE [None]
